FAERS Safety Report 9285907 (Version 2)
Quarter: 2013Q3

REPORT INFORMATION
  Report Type: Spontaneous
  Country: DE (occurrence: DE)
  Receive Date: 20130513
  Receipt Date: 20130830
  Transmission Date: 20140515
  Serious: Yes (Hospitalization)
  Sender: FDA-Public Use
  Company Number: DE-PFIZER INC-2013141999

PATIENT
  Age: 83 Year
  Sex: Female

DRUGS (2)
  1. XALATAN [Suspect]
  2. CRATAEGUS [Suspect]

REACTIONS (6)
  - Nausea [Unknown]
  - Vomiting [Unknown]
  - Yellow skin [Unknown]
  - Chromaturia [Unknown]
  - Faeces discoloured [Unknown]
  - Infectious mononucleosis [Unknown]
